FAERS Safety Report 6267409-5 (Version None)
Quarter: 2009Q3

REPORT INFORMATION
  Report Type: 
  Country: None (occurrence: None)
  Receive Date: 20090714
  Receipt Date: 20090701
  Transmission Date: 20100115
  Serious: Yes (Other)
  Sender: FDA-Public Use
  Company Number: JP-PFIZER INC-2009236364

PATIENT
  Age: 38 Year

DRUGS (2)
  1. METHYLPREDNISOLONE ACETATE AND METHYLPREDNISOLONE AND METHYLPREDNISOLO [Suspect]
     Dates: start: 20050420, end: 20050101
  2. PREDNISOLONE AND PREDNISOLONE STEAGLATE [Concomitant]
     Dates: start: 20040701

REACTIONS (2)
  - DEPRESSION [None]
  - LIVER DISORDER [None]
